FAERS Safety Report 5807088-1 (Version None)
Quarter: 2008Q3

REPORT INFORMATION
  Report Type: 
  Country: None (occurrence: None)
  Receive Date: 20080708
  Receipt Date: 20080626
  Transmission Date: 20090109
  Serious: Yes (Hospitalization)
  Sender: FDA-Public Use
  Company Number: 2008AL007794

PATIENT
  Age: 94 Year
  Sex: Female

DRUGS (5)
  1. MIRTAZAPINE [Suspect]
     Dosage: 30 MG
     Dates: end: 20080618
  2. LISINOPRIL [Concomitant]
  3. FUROSEMIDE [Concomitant]
  4. CLOPIDOGREL [Concomitant]
  5. DIGOXIN [Concomitant]

REACTIONS (1)
  - GASTROINTESTINAL HAEMORRHAGE [None]
